FAERS Safety Report 13411366 (Version 2)
Quarter: 2017Q4

REPORT INFORMATION
  Report Type: Spontaneous
  Country: US (occurrence: US)
  Receive Date: 20170406
  Receipt Date: 20171123
  Transmission Date: 20180320
  Serious: No
  Sender: FDA-Public Use
  Company Number: US-JNJFOC-20170304526

PATIENT
  Sex: Male

DRUGS (47)
  1. RISPERDAL [Suspect]
     Active Substance: RISPERIDONE
     Indication: ABNORMAL BEHAVIOUR
     Route: 048
     Dates: start: 20120608
  2. RISPERDAL [Suspect]
     Active Substance: RISPERIDONE
     Indication: AUTISM SPECTRUM DISORDER
     Route: 048
     Dates: start: 20120614
  3. RISPERDAL [Suspect]
     Active Substance: RISPERIDONE
     Indication: AUTISM SPECTRUM DISORDER
     Route: 048
     Dates: start: 20110107
  4. RISPERDAL [Suspect]
     Active Substance: RISPERIDONE
     Indication: ATTENTION DEFICIT/HYPERACTIVITY DISORDER
     Route: 048
     Dates: start: 20120614
  5. RISPERDAL [Suspect]
     Active Substance: RISPERIDONE
     Indication: ABNORMAL BEHAVIOUR
     Route: 048
     Dates: start: 20110107
  6. RISPERDAL [Suspect]
     Active Substance: RISPERIDONE
     Indication: AUTISM SPECTRUM DISORDER
     Route: 048
     Dates: end: 201201
  7. RISPERDAL [Suspect]
     Active Substance: RISPERIDONE
     Indication: LEARNING DISORDER
     Route: 048
     Dates: start: 20120608
  8. RISPERDAL [Suspect]
     Active Substance: RISPERIDONE
     Indication: ATTENTION DEFICIT/HYPERACTIVITY DISORDER
     Route: 048
     Dates: end: 20130502
  9. RISPERDAL [Suspect]
     Active Substance: RISPERIDONE
     Indication: PALPITATIONS
     Route: 048
     Dates: start: 20130314
  10. RISPERDAL [Suspect]
     Active Substance: RISPERIDONE
     Indication: ATTENTION DEFICIT/HYPERACTIVITY DISORDER
     Route: 048
     Dates: start: 20110107
  11. RISPERDAL [Suspect]
     Active Substance: RISPERIDONE
     Indication: ATTENTION DEFICIT/HYPERACTIVITY DISORDER
     Route: 048
     Dates: start: 20071101, end: 20080605
  12. RISPERIDONE. [Suspect]
     Active Substance: RISPERIDONE
     Indication: ATTENTION DEFICIT/HYPERACTIVITY DISORDER
     Route: 048
     Dates: start: 20080719, end: 20110201
  13. ABILIFY [Suspect]
     Active Substance: ARIPIPRAZOLE
     Indication: PRODUCT USED FOR UNKNOWN INDICATION
     Route: 065
  14. RISPERDAL [Suspect]
     Active Substance: RISPERIDONE
     Indication: PALPITATIONS
     Route: 048
     Dates: end: 20130502
  15. RISPERDAL [Suspect]
     Active Substance: RISPERIDONE
     Indication: ABNORMAL BEHAVIOUR
     Route: 048
     Dates: start: 20120614
  16. RISPERDAL [Suspect]
     Active Substance: RISPERIDONE
     Indication: AUTISM SPECTRUM DISORDER
     Route: 048
     Dates: end: 20130502
  17. RISPERDAL [Suspect]
     Active Substance: RISPERIDONE
     Indication: LEARNING DISORDER
     Route: 048
     Dates: start: 20071101, end: 20080605
  18. RISPERIDONE. [Suspect]
     Active Substance: RISPERIDONE
     Indication: LEARNING DISORDER
     Route: 048
     Dates: start: 20080719, end: 20110201
  19. RISPERIDONE. [Suspect]
     Active Substance: RISPERIDONE
     Indication: LEARNING DISORDER
     Route: 048
     Dates: start: 20120614, end: 20130205
  20. RISPERDAL [Suspect]
     Active Substance: RISPERIDONE
     Indication: PALPITATIONS
     Route: 048
     Dates: start: 20120608
  21. RISPERDAL [Suspect]
     Active Substance: RISPERIDONE
     Indication: ABNORMAL BEHAVIOUR
     Route: 048
     Dates: end: 20130502
  22. RISPERDAL [Suspect]
     Active Substance: RISPERIDONE
     Indication: ABNORMAL BEHAVIOUR
     Route: 048
     Dates: start: 20071101, end: 20080605
  23. RISPERDAL [Suspect]
     Active Substance: RISPERIDONE
     Indication: AUTISM SPECTRUM DISORDER
     Route: 048
     Dates: start: 20130314
  24. RISPERDAL [Suspect]
     Active Substance: RISPERIDONE
     Indication: AUTISM SPECTRUM DISORDER
     Route: 048
     Dates: start: 20120608
  25. RISPERDAL [Suspect]
     Active Substance: RISPERIDONE
     Indication: LEARNING DISORDER
     Route: 048
     Dates: end: 201201
  26. RISPERDAL [Suspect]
     Active Substance: RISPERIDONE
     Indication: ATTENTION DEFICIT/HYPERACTIVITY DISORDER
     Route: 048
     Dates: start: 20120608
  27. RISPERDAL [Suspect]
     Active Substance: RISPERIDONE
     Indication: ATTENTION DEFICIT/HYPERACTIVITY DISORDER
     Route: 048
     Dates: start: 20130314
  28. RISPERIDONE. [Suspect]
     Active Substance: RISPERIDONE
     Indication: LEARNING DISORDER
     Route: 048
     Dates: start: 20130318, end: 20130502
  29. RISPERIDONE. [Suspect]
     Active Substance: RISPERIDONE
     Indication: ATTENTION DEFICIT/HYPERACTIVITY DISORDER
     Route: 048
     Dates: start: 20120614, end: 20130205
  30. CLINDAMYCIN. [Interacting]
     Active Substance: CLINDAMYCIN
     Indication: CELLULITIS
     Route: 065
  31. RISPERDAL [Suspect]
     Active Substance: RISPERIDONE
     Indication: PALPITATIONS
     Route: 048
     Dates: start: 20110107
  32. RISPERDAL [Suspect]
     Active Substance: RISPERIDONE
     Indication: AUTISM SPECTRUM DISORDER
     Route: 048
     Dates: start: 20071101, end: 20080605
  33. RISPERDAL [Suspect]
     Active Substance: RISPERIDONE
     Indication: LEARNING DISORDER
     Route: 048
     Dates: start: 20120614
  34. RISPERDAL [Suspect]
     Active Substance: RISPERIDONE
     Indication: ATTENTION DEFICIT/HYPERACTIVITY DISORDER
     Route: 048
     Dates: end: 201201
  35. RISPERIDONE. [Suspect]
     Active Substance: RISPERIDONE
     Indication: AUTISM SPECTRUM DISORDER
     Route: 048
     Dates: start: 20120614, end: 20130205
  36. RISPERIDONE. [Suspect]
     Active Substance: RISPERIDONE
     Indication: PRODUCT USED FOR UNKNOWN INDICATION
     Route: 048
  37. RISPERDAL [Suspect]
     Active Substance: RISPERIDONE
     Indication: PALPITATIONS
     Route: 048
     Dates: start: 20120614
  38. RISPERDAL [Suspect]
     Active Substance: RISPERIDONE
     Indication: PALPITATIONS
     Route: 048
     Dates: end: 201201
  39. RISPERDAL [Suspect]
     Active Substance: RISPERIDONE
     Indication: PALPITATIONS
     Route: 048
     Dates: start: 20071101, end: 20080605
  40. RISPERDAL [Suspect]
     Active Substance: RISPERIDONE
     Indication: ABNORMAL BEHAVIOUR
     Route: 048
     Dates: start: 20130314
  41. RISPERDAL [Suspect]
     Active Substance: RISPERIDONE
     Indication: LEARNING DISORDER
     Route: 048
     Dates: end: 20130502
  42. RISPERDAL [Suspect]
     Active Substance: RISPERIDONE
     Indication: ABNORMAL BEHAVIOUR
     Route: 048
     Dates: end: 201201
  43. RISPERDAL [Suspect]
     Active Substance: RISPERIDONE
     Indication: LEARNING DISORDER
     Route: 048
     Dates: start: 20110107
  44. RISPERDAL [Suspect]
     Active Substance: RISPERIDONE
     Indication: LEARNING DISORDER
     Route: 048
     Dates: start: 20130314
  45. RISPERIDONE. [Suspect]
     Active Substance: RISPERIDONE
     Indication: AUTISM SPECTRUM DISORDER
     Route: 048
     Dates: start: 20080719, end: 20110201
  46. RISPERIDONE. [Suspect]
     Active Substance: RISPERIDONE
     Indication: AUTISM SPECTRUM DISORDER
     Route: 048
     Dates: start: 20130318, end: 20130502
  47. RISPERIDONE. [Suspect]
     Active Substance: RISPERIDONE
     Indication: ATTENTION DEFICIT/HYPERACTIVITY DISORDER
     Route: 048
     Dates: start: 20130318, end: 20130502

REACTIONS (4)
  - Emotional disorder [Unknown]
  - Gynaecomastia [Unknown]
  - Blood prolactin increased [Unknown]
  - Drug interaction [Unknown]
